FAERS Safety Report 7524455-9 (Version None)
Quarter: 2011Q2

REPORT INFORMATION
  Report Type: 
  Country: None (occurrence: None)
  Receive Date: 20110606
  Receipt Date: 20110128
  Transmission Date: 20111010
  Serious: Yes (Hospitalization, Other)
  Sender: FDA-Public Use
  Company Number: US-BAYER-201038719NA

PATIENT
  Age: 17 Year
  Sex: Female
  Weight: 71 kg

DRUGS (12)
  1. YAZ [Suspect]
     Route: 048
     Dates: start: 20080801, end: 20090828
  2. RETIN-A [Concomitant]
     Indication: ACNE
  3. METHYLPREDNISOLONE [Concomitant]
     Dosage: UNK
     Dates: start: 20080501
  4. ACCUTANE [Concomitant]
     Indication: ACNE
     Dosage: UNK
     Dates: start: 20090101
  5. CLARAVIS [Concomitant]
     Indication: ACNE
     Dosage: UNK
     Dates: start: 20080101, end: 20090101
  6. TETRACYCLINE [Concomitant]
     Indication: ACNE
     Dosage: UNK
     Dates: start: 20080401
  7. ACCUTANE [Concomitant]
     Dosage: UNK
     Dates: start: 20081001, end: 20090301
  8. ACCUTANE [Concomitant]
     Dosage: UNK
     Dates: start: 20100212
  9. ERYTHROMYCIN [Concomitant]
     Indication: ACNE
  10. CLEOCIN T [Concomitant]
     Indication: ACNE
  11. IBUPROFEN [Concomitant]
  12. MINOCYCLINE HCL [Concomitant]
     Indication: ACNE
     Dosage: 100 MG, BID
     Dates: start: 20080601

REACTIONS (18)
  - FATIGUE [None]
  - INSOMNIA [None]
  - PYREXIA [None]
  - DYSPNOEA [None]
  - MYALGIA [None]
  - ABDOMINAL PAIN [None]
  - CARDIAC FAILURE CONGESTIVE [None]
  - PULMONARY EMBOLISM [None]
  - ASTHENIA [None]
  - MYOSITIS [None]
  - DIARRHOEA [None]
  - DIZZINESS [None]
  - CHEST PAIN [None]
  - HEADACHE [None]
  - PLEURISY [None]
  - SYNCOPE [None]
  - DEHYDRATION [None]
  - PALPITATIONS [None]
